FAERS Safety Report 21550161 (Version 1)
Quarter: 2022Q4

REPORT INFORMATION
  Report Type: Spontaneous
  Country: CN (occurrence: CN)
  Receive Date: 20221103
  Receipt Date: 20221103
  Transmission Date: 20230113
  Serious: Yes (Other)
  Sender: FDA-Public Use
  Company Number: CN-PFIZER INC-PV202200094994

PATIENT
  Age: 25 Year
  Sex: Female
  Weight: 73.7 kg

DRUGS (1)
  1. CARBOPROST TROMETHAMINE [Suspect]
     Active Substance: CARBOPROST TROMETHAMINE
     Indication: Uterine haemorrhage
     Dosage: 0.25 MG, 1X/DAY
     Route: 030
     Dates: start: 20221015, end: 20221015

REACTIONS (2)
  - Rash erythematous [Recovering/Resolving]
  - Headache [Recovering/Resolving]

NARRATIVE: CASE EVENT DATE: 20221015
